FAERS Safety Report 11037813 (Version 4)
Quarter: 2015Q3

REPORT INFORMATION
  Report Type: Spontaneous
  Country: US (occurrence: US)
  Receive Date: 20150416
  Receipt Date: 20150807
  Transmission Date: 20151125
  Serious: Yes (Hospitalization, Other)
  Sender: FDA-Public Use
  Company Number: US-009507513-1504USA015458

PATIENT
  Sex: Female
  Weight: 89.5 kg

DRUGS (1)
  1. JANUVIA [Suspect]
     Active Substance: SITAGLIPTIN PHOSPHATE
     Indication: TYPE 2 DIABETES MELLITUS
     Dosage: 100 MG, QD
     Route: 048
     Dates: start: 20070427, end: 201307

REACTIONS (13)
  - Radiotherapy to pancreas [Unknown]
  - Aortic arteriosclerosis [Unknown]
  - Constipation [Unknown]
  - Hysterectomy [Unknown]
  - Vomiting [Unknown]
  - Inguinal hernia [Unknown]
  - Arthralgia [Unknown]
  - Neuropathy peripheral [Unknown]
  - Spinal osteoarthritis [Unknown]
  - Renal cyst [Unknown]
  - Glaucoma [Unknown]
  - Adenocarcinoma pancreas [Unknown]
  - Nausea [Unknown]

NARRATIVE: CASE EVENT DATE: 2013
